FAERS Safety Report 7368275-7 (Version None)
Quarter: 2011Q1

REPORT INFORMATION
  Report Type: 
  Country: None (occurrence: None)
  Receive Date: 20110311
  Receipt Date: 20110221
  Transmission Date: 20110831
  Serious: Yes (Other)
  Sender: FDA-Public Use
  Company Number: CC11-0340

PATIENT

DRUGS (1)
  1. ATRIDOX (TOLMAR) [Suspect]

REACTIONS (1)
  - ADVERSE EVENT [None]
